FAERS Safety Report 15022501 (Version 1)
Quarter: 2018Q2

REPORT INFORMATION
  Report Type: Spontaneous
  Country: JP (occurrence: JP)
  Receive Date: 20180618
  Receipt Date: 20180618
  Transmission Date: 20180711
  Serious: Yes (Hospitalization, Other)
  Sender: FDA-Public Use
  Company Number: JP-PFIZER INC-2017292375

PATIENT
  Age: 48 Year
  Sex: Male
  Weight: 68 kg

DRUGS (11)
  1. INLYTA [Suspect]
     Active Substance: AXITINIB
     Dosage: 3 MG, 2X/DAY
     Route: 048
     Dates: start: 20170712, end: 20171003
  2. MECOBALAMIN [Concomitant]
     Active Substance: METHYLCOBALAMIN
     Dosage: 500 UG, 2X/DAY
     Route: 048
  3. ADALAT CC [Concomitant]
     Active Substance: NIFEDIPINE
     Dosage: 1 DF, 1X/DAY
     Route: 048
  4. OLOPATADINE HYDROCHLORIDE. [Concomitant]
     Active Substance: OLOPATADINE HYDROCHLORIDE
     Dosage: 5 MG, 2X/DAY
     Route: 048
  5. HUMALOG [Concomitant]
     Active Substance: INSULIN LISPRO
     Dosage: 10 IU, 3X/DAY
     Route: 058
  6. INLYTA [Suspect]
     Active Substance: AXITINIB
     Indication: METASTATIC RENAL CELL CARCINOMA
     Dosage: 5 MG, 2X/DAY
     Route: 048
     Dates: start: 20161222, end: 20170608
  7. LANTUS XR [Concomitant]
     Active Substance: INSULIN GLARGINE
     Dosage: 12 IU, 1X/DAY
     Route: 058
  8. MICOMBI COMBINATION [Concomitant]
     Active Substance: HYDROCHLOROTHIAZIDE\TELMISARTAN
     Dosage: 1 DF, 1X/DAY
     Route: 048
  9. CARVEDILOL. [Concomitant]
     Active Substance: CARVEDILOL
     Dosage: 20 MG, 1X/DAY
     Route: 048
  10. NEUROTROPIN [Concomitant]
     Active Substance: NEUROTROPIN
     Dosage: 1 DF, 2X/DAY
     Route: 048
  11. CIMETIDINE [Concomitant]
     Active Substance: CIMETIDINE
     Dosage: 200 MG, 1X/DAY

REACTIONS (5)
  - Proteinuria [Unknown]
  - Condition aggravated [Unknown]
  - Hypertension [Unknown]
  - Neoplasm progression [Unknown]
  - Renal impairment [Unknown]

NARRATIVE: CASE EVENT DATE: 20170303
